FAERS Safety Report 19692099 (Version 1)
Quarter: 2021Q3

REPORT INFORMATION
  Report Type: Spontaneous
  Country: CN (occurrence: CN)
  Receive Date: 20210812
  Receipt Date: 20210812
  Transmission Date: 20211014
  Serious: Yes (Other)
  Sender: FDA-Public Use
  Company Number: CN-BAXTER-2021BAX024397

PATIENT
  Age: 32 Year
  Sex: Male
  Weight: 84 kg

DRUGS (10)
  1. HOLOXAN [Suspect]
     Active Substance: IFOSFAMIDE
     Dosage: DOSE RE?INTRODUCED; 11TH CYCLE OF CHEMOTHERAPY; DAY 3 TO 5
     Route: 041
     Dates: start: 20210708, end: 20210710
  2. HOLOXAN [Suspect]
     Active Substance: IFOSFAMIDE
     Indication: EWING^S SARCOMA
     Dosage: 1ST TO 10TH CYCLE OF CHEMOTHERAPY
     Route: 041
  3. NAVELBINE [Suspect]
     Active Substance: VINORELBINE TARTRATE
     Indication: EWING^S SARCOMA
     Dosage: 1ST TO 10TH CYCLE OF CHEMOTHERAPY
     Route: 041
  4. DOXORUBICIN HYDROCHLORIDE LIPOSOME [Suspect]
     Active Substance: DOXORUBICIN HYDROCHLORIDE
     Dosage: 11TH CYCLE OF CHEMOTHERAPY; DAY 2
     Route: 041
     Dates: start: 20210707, end: 20210707
  5. DOXORUBICIN HYDROCHLORIDE LIPOSOME [Suspect]
     Active Substance: DOXORUBICIN HYDROCHLORIDE
     Dosage: 11TH CYCLE OF CHEMOTHERAPY; DAY 1
     Route: 041
     Dates: start: 20210706, end: 20210706
  6. DOXORUBICIN HYDROCHLORIDE LIPOSOME [Suspect]
     Active Substance: DOXORUBICIN HYDROCHLORIDE
     Indication: EWING^S SARCOMA
     Dosage: 1ST TO 10TH CYCLE OF CHEMOTHERAPY
     Route: 041
  7. DOXORUBICIN HYDROCHLORIDE LIPOSOME [Suspect]
     Active Substance: DOXORUBICIN HYDROCHLORIDE
     Dosage: DOSE RE?INTRODUCED
     Route: 041
  8. NAVELBINE [Suspect]
     Active Substance: VINORELBINE TARTRATE
     Dosage: 11TH CYCLE OF CHEMOTHERAPY; DAY 1
     Route: 041
     Dates: start: 20210706, end: 20210706
  9. HOLOXAN [Suspect]
     Active Substance: IFOSFAMIDE
     Dosage: 11TH CYCLE OF CHEMOTHERAPY; DAY 1 TO 2
     Route: 041
     Dates: start: 20210706, end: 20210707
  10. NAVELBINE [Suspect]
     Active Substance: VINORELBINE TARTRATE
     Dosage: DOSE RE?INTRODUCED
     Route: 041

REACTIONS (1)
  - Hypokalaemia [Recovered/Resolved]

NARRATIVE: CASE EVENT DATE: 20210707
